FAERS Safety Report 6954722-9 (Version None)
Quarter: 2010Q3

REPORT INFORMATION
  Report Type: 
  Country: None (occurrence: None)
  Receive Date: 20100829
  Receipt Date: 20080111
  Transmission Date: 20110219
  Serious: No
  Sender: FDA-Public Use
  Company Number: US-ALLERGAN-0800293US

PATIENT
  Age: 57 Year
  Sex: Female

DRUGS (3)
  1. RESTASIS [Suspect]
     Indication: DRY EYE
     Dosage: UNK, BID
     Route: 047
     Dates: start: 20071217
  2. FML [Suspect]
     Indication: EYE IRRITATION
     Dosage: UNK, BID
     Route: 047
     Dates: start: 20071203, end: 20071217
  3. SEVERAL OTHER MEDICATIONS [Concomitant]

REACTIONS (6)
  - EAR DISCOMFORT [None]
  - EAR INFECTION [None]
  - EYE IRRITATION [None]
  - LACRIMATION INCREASED [None]
  - SWELLING FACE [None]
  - TINNITUS [None]
